FAERS Safety Report 24217358 (Version 3)
Quarter: 2024Q4

REPORT INFORMATION
  Report Type: Spontaneous
  Country: CA (occurrence: CA)
  Receive Date: 20240816
  Receipt Date: 20241010
  Transmission Date: 20250115
  Serious: No
  Sender: PFIZER
  Company Number: CA-PFIZER INC-202400235898

PATIENT

DRUGS (1)
  1. DEPO-PROVERA [Suspect]
     Active Substance: MEDROXYPROGESTERONE ACETATE
     Dosage: UNK

REACTIONS (1)
  - Device occlusion [Unknown]
